FAERS Safety Report 13609455 (Version 2)
Quarter: 2017Q2

REPORT INFORMATION
  Report Type: Spontaneous
  Country: US (occurrence: US)
  Receive Date: 20170602
  Receipt Date: 20170605
  Transmission Date: 20170830
  Serious: No
  Sender: FDA-Public Use
  Company Number: US-PFIZER INC-2990471

PATIENT
  Sex: Female

DRUGS (1)
  1. KETOROLAC TROMETHAMINE. [Suspect]
     Active Substance: KETOROLAC TROMETHAMINE
     Indication: MIGRAINE
     Dosage: UNK
     Dates: start: 20150628

REACTIONS (5)
  - Fear of closed spaces [Unknown]
  - Obsessive-compulsive disorder [Unknown]
  - Anxiety [Unknown]
  - Feeling abnormal [Unknown]
  - Nervousness [Unknown]
